FAERS Safety Report 14732201 (Version 1)
Quarter: 2018Q2

REPORT INFORMATION
  Report Type: Report from Study
  Country: BR (occurrence: BR)
  Receive Date: 20180409
  Receipt Date: 20180409
  Transmission Date: 20180711
  Serious: Yes (Other)
  Sender: FDA-Public Use
  Company Number: BR-ROCHE-2098839

PATIENT
  Sex: Female
  Weight: 75 kg

DRUGS (4)
  1. KADCYLA [Suspect]
     Active Substance: ADO-TRASTUZUMAB EMTANSINE
     Indication: BREAST CANCER
     Route: 065
     Dates: start: 20150630, end: 20160330
  2. TAXOTERE [Concomitant]
     Active Substance: DOCETAXEL
     Indication: BREAST CANCER
     Dosage: EVERY 3 WEEKS
     Route: 065
     Dates: start: 20140930, end: 20150630
  3. TAXOTERE [Concomitant]
     Active Substance: DOCETAXEL
     Dosage: EVERY 3 WEEKS
     Route: 065
     Dates: start: 20150630, end: 20160330
  4. HERCEPTIN [Concomitant]
     Active Substance: TRASTUZUMAB
     Indication: BREAST CANCER
     Dosage: EVERY 3 WEEKS
     Route: 065
     Dates: start: 20140930, end: 20150330

REACTIONS (2)
  - Disease progression [Unknown]
  - Drug ineffective [Unknown]
